FAERS Safety Report 5606333-5 (Version None)
Quarter: 2008Q1

REPORT INFORMATION
  Report Type: 
  Country: None (occurrence: None)
  Receive Date: 20080129
  Receipt Date: 20070630
  Transmission Date: 20080703
  Serious: No
  Sender: FDA-Public Use
  Company Number: A0659735A

PATIENT

DRUGS (1)
  1. WELLBUTRIN [Suspect]
     Indication: DRUG USE FOR UNKNOWN INDICATION
     Dates: start: 20070101

REACTIONS (6)
  - ASTHENIA [None]
  - DISCOMFORT [None]
  - FATIGUE [None]
  - HEADACHE [None]
  - SLEEP DISORDER [None]
  - TREMOR [None]
